FAERS Safety Report 5827876-5 (Version None)
Quarter: 2008Q3

REPORT INFORMATION
  Report Type: 
  Country: None (occurrence: None)
  Receive Date: 20080730
  Receipt Date: 20080718
  Transmission Date: 20090109
  Serious: Yes (Other)
  Sender: FDA-Public Use
  Company Number: US-PFIZER INC-2008047144

PATIENT
  Sex: Female
  Weight: 90 kg

DRUGS (9)
  1. AROMASIN [Suspect]
     Indication: BREAST CANCER
     Route: 048
  2. BAYCOL [Concomitant]
     Dates: start: 20040101, end: 20050101
  3. PRAVACHOL [Concomitant]
     Dates: start: 20050101, end: 20050101
  4. ACTOS [Concomitant]
     Indication: TYPE 2 DIABETES MELLITUS
  5. CELEBREX [Concomitant]
     Indication: ARTHRITIS
  6. PREVACID [Concomitant]
  7. LISINOPRIL [Concomitant]
     Indication: HYPERTENSION
  8. LUMIGAN [Concomitant]
     Indication: GLAUCOMA
     Dosage: FREQ:BEDTIME
     Route: 031
  9. TIMOPTIC [Concomitant]
     Indication: GLAUCOMA
     Route: 031

REACTIONS (2)
  - BLOOD CHOLESTEROL INCREASED [None]
  - METASTASES TO BONE [None]
